FAERS Safety Report 4318056-3 (Version None)
Quarter: 2004Q1

REPORT INFORMATION
  Report Type: 
  Country: None (occurrence: None)
  Receive Date: 20040317
  Receipt Date: 20040309
  Transmission Date: 20041129
  Serious: Yes (Hospitalization)
  Sender: FDA-Public Use
  Company Number: PHRM2004FR01104

PATIENT
  Age: 10 Year
  Sex: Female

DRUGS (2)
  1. VOLTAREN [Suspect]
     Indication: TORTICOLLIS
     Dosage: 3 MG/KG/J
     Route: 048
  2. MOPRAL [Concomitant]
     Indication: TORTICOLLIS
     Route: 048

REACTIONS (9)
  - ABDOMINAL PAIN [None]
  - BLOOD AMYLASE INCREASED [None]
  - CONSTIPATION [None]
  - DEHYDRATION [None]
  - DRUG INTOLERANCE [None]
  - GASTRIC DISORDER [None]
  - GASTRITIS [None]
  - LIPASE INCREASED [None]
  - VOMITING [None]
